FAERS Safety Report 5728499-9 (Version None)
Quarter: 2008Q2

REPORT INFORMATION
  Report Type: 
  Country: None (occurrence: None)
  Receive Date: 20080506
  Receipt Date: 20080501
  Transmission Date: 20081010
  Serious: Yes (Hospitalization)
  Sender: FDA-Public Use
  Company Number: US-BRISTOL-MYERS SQUIBB COMPANY-14173264

PATIENT
  Age: 24 Year
  Sex: Male

DRUGS (9)
  1. TACROLIMUS [Suspect]
     Indication: RENAL TRANSPLANT
     Dosage: 6 MG FROM 24APR08-25APR08, 8MG- 26APR08-26APR08,9MG FROM 27APR08-CONT
     Route: 048
     Dates: start: 20080420, end: 20080423
  2. MYCOPHENOLATE MOFETIL [Suspect]
     Indication: RENAL TRANSPLANT
     Route: 048
     Dates: start: 20080414
  3. AMLODIPINE [Concomitant]
     Dates: start: 20080417
  4. CLONIDINE HCL [Concomitant]
     Dates: start: 20040101
  5. VALCYTE [Concomitant]
     Dates: start: 20080419
  6. BACTRIM [Concomitant]
     Dates: start: 20080415
  7. NILSTAT [Concomitant]
     Dates: start: 20080415
  8. TUMS [Concomitant]
     Dates: start: 20080419
  9. ASPIRIN [Concomitant]
     Dates: start: 20080415

REACTIONS (2)
  - DEHYDRATION [None]
  - DRUG TOXICITY [None]
